FAERS Safety Report 11069732 (Version 5)
Quarter: 2015Q3

REPORT INFORMATION
  Report Type: Report from Study
  Country: CA (occurrence: CA)
  Receive Date: 20150427
  Receipt Date: 20150928
  Transmission Date: 20151125
  Serious: Yes (Disabling, Other)
  Sender: FDA-Public Use
  Company Number: CA-BAYER-2015-025079

PATIENT
  Age: 38 Year
  Sex: Female

DRUGS (5)
  1. STIVARGA [Suspect]
     Active Substance: REGORAFENIB
     Indication: COLORECTAL CANCER METASTATIC
     Dosage: 160 MG, QD
     Route: 048
     Dates: start: 20150402, end: 20150429
  2. DOXYCYCLINE. [Concomitant]
     Active Substance: DOXYCYCLINE
  3. STIVARGA [Suspect]
     Active Substance: REGORAFENIB
     Indication: COLORECTAL CANCER METASTATIC
     Dosage: 160 MG, QD
     Route: 048
     Dates: start: 20150209, end: 20150214
  4. STIVARGA [Suspect]
     Active Substance: REGORAFENIB
     Indication: COLORECTAL CANCER METASTATIC
     Dosage: 80 MG, QD
     Route: 048
     Dates: start: 20150429, end: 20150506
  5. FRAGMIN [DALTEPARIN SODIUM] [Concomitant]

REACTIONS (24)
  - Fatigue [Recovering/Resolving]
  - Oropharyngeal pain [Recovering/Resolving]
  - Therapy cessation [None]
  - Drug ineffective [None]
  - Blood magnesium decreased [Not Recovered/Not Resolved]
  - Feeling abnormal [Not Recovered/Not Resolved]
  - Pain in extremity [Not Recovered/Not Resolved]
  - Colorectal cancer metastatic [None]
  - Increased tendency to bruise [None]
  - Pyrexia [Recovering/Resolving]
  - Malaise [Recovering/Resolving]
  - Dysphonia [Recovered/Resolved]
  - Anxiety [None]
  - Influenza like illness [Recovering/Resolving]
  - Decreased appetite [Recovering/Resolving]
  - Hepatic enzyme increased [Not Recovered/Not Resolved]
  - Diarrhoea [Recovering/Resolving]
  - Palmar-plantar erythrodysaesthesia syndrome [Recovered/Resolved]
  - Nausea [Recovering/Resolving]
  - Dizziness [Recovering/Resolving]
  - Medication residue present [Unknown]
  - Gait disturbance [Not Recovered/Not Resolved]
  - Blister [Recovering/Resolving]
  - Tongue ulceration [Recovered/Resolved]

NARRATIVE: CASE EVENT DATE: 2015
